FAERS Safety Report 16409557 (Version 1)
Quarter: 2019Q2

REPORT INFORMATION
  Report Type: Report from Study
  Country: GB (occurrence: GB)
  Receive Date: 20190610
  Receipt Date: 20190610
  Transmission Date: 20190711
  Serious: Yes (Hospitalization, Other)
  Sender: FDA-Public Use
  Company Number: GB-JNJFOC-20190607401

PATIENT
  Sex: Female

DRUGS (1)
  1. STELARA [Suspect]
     Active Substance: USTEKINUMAB
     Indication: CROHN^S DISEASE
     Dosage: AFTER INDUCTION AS DIRECTED
     Route: 058
     Dates: start: 20190222

REACTIONS (3)
  - Crohn^s disease [Unknown]
  - Infusion related reaction [Unknown]
  - Influenza [Unknown]

NARRATIVE: CASE EVENT DATE: 2019
